FAERS Safety Report 7251815-6 (Version None)
Quarter: 2011Q1

REPORT INFORMATION
  Report Type: 
  Country: None (occurrence: None)
  Receive Date: 20110128
  Receipt Date: 20100118
  Transmission Date: 20110831
  Serious: No
  Sender: FDA-Public Use
  Company Number: US-ABBOTT-10P-163-0620646-00

PATIENT
  Sex: Female

DRUGS (7)
  1. ZONEGRAN [Concomitant]
     Indication: CONVULSION
     Route: 048
  2. PENTASA [Concomitant]
     Indication: CROHN'S DISEASE
     Route: 048
  3. IRON [Concomitant]
     Indication: PRODUCT USED FOR UNKNOWN INDICATION
  4. IMURAN [Concomitant]
     Indication: CROHN'S DISEASE
     Route: 048
  5. HUMIRA [Suspect]
     Dosage: AFTER 15 DAYS WAS GOING TO TAKE MEDICATION EVERY 2 WEEKS.
     Route: 058
     Dates: start: 20100114, end: 20100114
  6. HUMIRA [Suspect]
     Indication: CROHN'S DISEASE
     Dosage: 4 INJECTIONS
     Route: 058
     Dates: start: 20091229, end: 20091229
  7. UNKNOWN PAIN MEDICATION [Concomitant]
     Indication: PRODUCT USED FOR UNKNOWN INDICATION

REACTIONS (5)
  - HYPOAESTHESIA ORAL [None]
  - NAUSEA [None]
  - DIZZINESS [None]
  - FEELING HOT [None]
  - DRUG INEFFECTIVE [None]
